FAERS Safety Report 13593875 (Version 2)
Quarter: 2017Q2

REPORT INFORMATION
  Report Type: Spontaneous
  Country: US (occurrence: US)
  Receive Date: 20170530
  Receipt Date: 20170627
  Transmission Date: 20170830
  Serious: Yes (Other)
  Sender: FDA-Public Use
  Company Number: US-OTSUKA-2017_011815

PATIENT

DRUGS (2)
  1. REXULTI [Suspect]
     Active Substance: BREXPIPRAZOLE
     Dosage: UNK
     Route: 065
  2. REXULTI [Suspect]
     Active Substance: BREXPIPRAZOLE
     Indication: SCHIZOPHRENIA
     Dosage: 4 MG, UNK
     Route: 065

REACTIONS (4)
  - Hallucination, auditory [Unknown]
  - Suicidal ideation [Unknown]
  - Psychotic disorder [Unknown]
  - Drug ineffective [Unknown]
